FAERS Safety Report 10737051 (Version 2)
Quarter: 2015Q1

REPORT INFORMATION
  Report Type: Report from Study
  Country: CN (occurrence: CN)
  Receive Date: 20150126
  Receipt Date: 20150217
  Transmission Date: 20150721
  Serious: Yes (Hospitalization, Other)
  Sender: FDA-Public Use
  Company Number: CN-TAKEDA-2015JNJ000251

PATIENT

DRUGS (13)
  1. VELCADE [Suspect]
     Active Substance: BORTEZOMIB
     Indication: MANTLE CELL LYMPHOMA
     Dosage: 2.1 MG, UNK
     Route: 042
     Dates: start: 20140902, end: 20141203
  2. VELCADE [Suspect]
     Active Substance: BORTEZOMIB
     Dosage: UNK
     Route: 042
     Dates: start: 20141207
  3. CYCLOPHOSPHAMIDE. [Suspect]
     Active Substance: CYCLOPHOSPHAMIDE
     Indication: MANTLE CELL LYMPHOMA
     Dosage: UNK
     Route: 065
     Dates: start: 20140902, end: 20141203
  4. CYCLOPHOSPHAMIDE. [Suspect]
     Active Substance: CYCLOPHOSPHAMIDE
     Dosage: 0.4 G, UNK
     Route: 065
     Dates: start: 20141204
  5. CODEINE [Concomitant]
     Active Substance: CODEINE
     Indication: ANTITUSSIVE THERAPY
     Dosage: 24 MG, TID
     Dates: start: 20141219
  6. FLUDARABINE [Suspect]
     Active Substance: FLUDARABINE PHOSPHATE
     Dosage: UNK
     Route: 042
     Dates: start: 20141204, end: 20141206
  7. GRANOCYTE                          /03200101/ [Concomitant]
     Active Substance: LENOGRASTIM
     Indication: WHITE BLOOD CELL COUNT INCREASED
     Dosage: 250 MG, TID
     Dates: start: 20141214, end: 20141219
  8. VELCADE [Suspect]
     Active Substance: BORTEZOMIB
     Dosage: UNK
     Route: 042
     Dates: start: 20141211
  9. CELECOXIB. [Concomitant]
     Active Substance: CELECOXIB
     Indication: ANTIPYRESIS
     Dosage: 200 MG, UNK
     Dates: start: 20141215, end: 20141216
  10. VELCADE [Suspect]
     Active Substance: BORTEZOMIB
     Dosage: UNK
     Route: 042
     Dates: start: 20141204
  11. FLUDARABINE [Suspect]
     Active Substance: FLUDARABINE PHOSPHATE
     Indication: MANTLE CELL LYMPHOMA
     Dosage: UNK
     Route: 042
     Dates: start: 20140902, end: 20141203
  12. IMIPENEM [Concomitant]
     Active Substance: IMIPENEM
     Indication: ANTI-INFECTIVE THERAPY
     Dosage: UNK
     Dates: start: 20141214, end: 20141219
  13. VELCADE [Suspect]
     Active Substance: BORTEZOMIB
     Dosage: UNK
     Route: 042
     Dates: start: 20141214

REACTIONS (1)
  - Bone marrow failure [Recovered/Resolved]

NARRATIVE: CASE EVENT DATE: 20141214
